FAERS Safety Report 13837601 (Version 2)
Quarter: 2017Q3

REPORT INFORMATION
  Report Type: Report from Study
  Country: IT (occurrence: IT)
  Receive Date: 20170805
  Receipt Date: 20170901
  Transmission Date: 20171127
  Serious: Yes (Congenital Anomaly, Other)
  Sender: FDA-Public Use
  Company Number: IT-AUROBINDO-AUR-APL-2017-38223

PATIENT
  Sex: Female
  Weight: 3.85 kg

DRUGS (5)
  1. LEVETIRACETAM. [Suspect]
     Active Substance: LEVETIRACETAM
     Dosage: 2000 MG, DAILY
     Route: 064
     Dates: start: 20151222, end: 20160206
  2. ADEMETIONINE [Concomitant]
     Active Substance: ADEMETIONINE
     Indication: DEPRESSION
     Dosage: 400 MG, UNK
     Route: 064
  3. FOLIC ACID. [Concomitant]
     Active Substance: FOLIC ACID
     Dosage: 5000 MCG, UNK
     Route: 064
     Dates: start: 20150301
  4. LEVETIRACETAM. [Suspect]
     Active Substance: LEVETIRACETAM
     Indication: EPILEPSY
     Dosage: 1500 MG, DAILY
     Route: 064
     Dates: start: 2015, end: 2015
  5. MAALOX ANTACID [Concomitant]
     Active Substance: ALUMINUM HYDROXIDE\DIMETHICONE\MAGNESIUM HYDROXIDE
     Indication: GASTROOESOPHAGEAL REFLUX DISEASE
     Dosage: 400 MG, UNK
     Route: 064

REACTIONS (3)
  - Foetal exposure during pregnancy [Unknown]
  - Right aortic arch [Not Recovered/Not Resolved]
  - Congenital arterial malformation [Not Recovered/Not Resolved]

NARRATIVE: CASE EVENT DATE: 2015
